FAERS Safety Report 6524309-0 (Version None)
Quarter: 2009Q4

REPORT INFORMATION
  Report Type: 
  Country: None (occurrence: None)
  Receive Date: 20091231
  Receipt Date: 20091228
  Transmission Date: 20100525
  Serious: Yes (Disabling)
  Sender: FDA-Public Use
  Company Number: US-MERCK-0912USA02709

PATIENT
  Age: 32 Month
  Sex: Male

DRUGS (3)
  1. SINGULAIR [Suspect]
     Indication: ASTHMA
     Route: 048
     Dates: start: 20091204, end: 20091212
  2. SINGULAIR [Suspect]
     Indication: RHINITIS ALLERGIC
     Route: 048
     Dates: start: 20091204, end: 20091212
  3. PULMICORT [Concomitant]
     Route: 065

REACTIONS (6)
  - COUGH [None]
  - PYREXIA [None]
  - SOMNOLENCE [None]
  - TIC [None]
  - UNRESPONSIVE TO STIMULI [None]
  - VOMITING [None]
